FAERS Safety Report 7138398-6 (Version None)
Quarter: 2010Q4

REPORT INFORMATION
  Report Type: 
  Country: None (occurrence: None)
  Receive Date: 20101202
  Receipt Date: 20101202
  Transmission Date: 20110411
  Serious: Yes (Hospitalization)
  Sender: FDA-Public Use
  Company Number: None

PATIENT
  Age: 64 Year
  Sex: Female
  Weight: 86.1834 kg

DRUGS (2)
  1. DEPLIN 15 MG NOT ON LABEL [Suspect]
     Indication: BIPOLAR DISORDER
     Dosage: 15 MG ONCE PER DAY PO
     Route: 048
  2. GEODON [Suspect]
     Indication: BIPOLAR DISORDER
     Dosage: 20 MG ONCE PER DAY PO
     Route: 048

REACTIONS (8)
  - ABDOMINAL PAIN LOWER [None]
  - CHEST DISCOMFORT [None]
  - ECZEMA [None]
  - GLOSSITIS [None]
  - IRRITABLE BOWEL SYNDROME [None]
  - MUSCLE CONTRACTURE [None]
  - ORAL HERPES [None]
  - TINNITUS [None]
